FAERS Safety Report 11250855 (Version 1)
Quarter: 2015Q3

REPORT INFORMATION
  Report Type: Spontaneous
  Country: US (occurrence: US)
  Receive Date: 20150708
  Receipt Date: 20150708
  Transmission Date: 20151125
  Serious: No
  Sender: FDA-Public Use
  Company Number: US-ELI_LILLY_AND_COMPANY-US201105005658

PATIENT
  Age: 60 Year
  Sex: Female

DRUGS (4)
  1. PROZAC [Suspect]
     Active Substance: FLUOXETINE HYDROCHLORIDE
     Indication: DEPRESSION
     Dosage: 10 MG, QD
     Dates: start: 20110508, end: 201105
  2. PROZAC [Suspect]
     Active Substance: FLUOXETINE HYDROCHLORIDE
     Dosage: 20 MG, QD
     Dates: start: 201105
  3. LORAZEPAM. [Concomitant]
     Active Substance: LORAZEPAM
     Indication: ANXIETY
     Dosage: 0.5 MG, UNK
  4. TEMAZEPAM. [Concomitant]
     Active Substance: TEMAZEPAM
     Indication: SLEEP DISORDER

REACTIONS (6)
  - Rash pruritic [Recovering/Resolving]
  - Insomnia [Unknown]
  - Nervousness [Unknown]
  - Decreased appetite [Unknown]
  - Feeling abnormal [Unknown]
  - Hypersomnia [Unknown]

NARRATIVE: CASE EVENT DATE: 201105
